FAERS Safety Report 5605795-7 (Version None)
Quarter: 2008Q1

REPORT INFORMATION
  Report Type: 
  Country: None (occurrence: None)
  Receive Date: 20080123
  Receipt Date: 20080114
  Transmission Date: 20080703
  Serious: Yes (Other)
  Sender: FDA-Public Use
  Company Number: 2008001552

PATIENT
  Age: 57 Year
  Sex: Male

DRUGS (1)
  1. MINOXIDIL [Suspect]
     Indication: ALOPECIA
     Dosage: UNSPECIFIED,TOPICAL
     Route: 061

REACTIONS (2)
  - DERMATITIS CONTACT [None]
  - SKIN HYPERPIGMENTATION [None]
